FAERS Safety Report 9394768 (Version 1)
Quarter: 2013Q3

REPORT INFORMATION
  Report Type: Spontaneous
  Country: AU (occurrence: AU)
  Receive Date: 20130711
  Receipt Date: 20130711
  Transmission Date: 20140515
  Serious: Yes (Other)
  Sender: FDA-Public Use
  Company Number: AU-BAYER-2013-080110

PATIENT
  Age: 18 Year
  Sex: Female

DRUGS (1)
  1. BETAFERON [Suspect]
     Indication: CLINICALLY ISOLATED SYNDROME
     Dosage: 250 ?G, QOD
     Route: 058
     Dates: start: 20121206, end: 20130701

REACTIONS (2)
  - Multiple sclerosis [Recovered/Resolved]
  - Multiple sclerosis [Unknown]
